FAERS Safety Report 16679564 (Version 2)
Quarter: 2019Q3

REPORT INFORMATION
  Report Type: Spontaneous
  Country: CA (occurrence: CA)
  Receive Date: 20190807
  Receipt Date: 20190930
  Transmission Date: 20191004
  Serious: Yes (Hospitalization, Other)
  Sender: FDA-Public Use
  Company Number: CA-TEVA-2019-CA-1087268

PATIENT
  Sex: Female

DRUGS (7)
  1. HYDROMORPHONE HYDROCHLORIDE. [Suspect]
     Active Substance: HYDROMORPHONE HYDROCHLORIDE
     Indication: DRUG ABUSE
     Route: 065
  2. COCAINE [Suspect]
     Active Substance: COCAINE
     Indication: DRUG ABUSE
     Route: 065
  3. KETAMINE [Suspect]
     Active Substance: KETAMINE
     Indication: DRUG ABUSE
     Route: 065
  4. METHYLENEDIOXYMETHAMPHETAMINE [Suspect]
     Active Substance: MIDOMAFETAMINE
     Indication: DRUG ABUSE
     Route: 065
  5. GAMMA-HYDROXYBUTYRATE [Suspect]
     Active Substance: 4-HYDROXYBUTANOIC ACID
     Indication: DRUG ABUSE
     Route: 065
  6. METHAMPHETAMINE[METAMFETAMINE] [Suspect]
     Active Substance: METHAMPHETAMINE
     Indication: DRUG ABUSE
     Route: 065
  7. OXYBATE SODIUM [Suspect]
     Active Substance: SODIUM OXYBATE
     Indication: DRUG ABUSE
     Route: 065

REACTIONS (6)
  - Substance abuse [Recovered/Resolved]
  - Gait disturbance [Recovered/Resolved]
  - Cardiac arrest [Recovered/Resolved]
  - Substance dependence [Recovered/Resolved]
  - Drug withdrawal syndrome [Recovered/Resolved]
  - Endocarditis [Recovered/Resolved]
